FAERS Safety Report 12238419 (Version 1)
Quarter: 2016Q2

REPORT INFORMATION
  Report Type: Spontaneous
  Country: AU (occurrence: AU)
  Receive Date: 20160405
  Receipt Date: 20160405
  Transmission Date: 20160815
  Serious: Yes (Hospitalization)
  Sender: FDA-Public Use
  Company Number: AU-PFIZER INC-2016182974

PATIENT
  Age: 62 Year
  Sex: Male

DRUGS (17)
  1. MEROPENEM. [Concomitant]
     Active Substance: MEROPENEM
     Indication: PROPHYLAXIS
     Dosage: 1000 MG, 3X/DAY
     Route: 042
  2. ASPIRIN. [Concomitant]
     Active Substance: ASPIRIN
     Dosage: 100 MG, IN THE MORNING
     Route: 065
  3. LINEZOLID. [Concomitant]
     Active Substance: LINEZOLID
     Indication: PROPHYLAXIS
     Dosage: 600 MG, 2X/DAY
     Route: 042
  4. RITONAVIR. [Interacting]
     Active Substance: RITONAVIR
     Dosage: 100 MG, 2X/DAY
     Route: 065
  5. OXYCODONE [Concomitant]
     Active Substance: OXYCODONE
     Dosage: 60 MG, 2X/DAY
     Route: 065
  6. KETAMINE [Concomitant]
     Active Substance: KETAMINE
     Route: 042
  7. EMTRICITABINE W/TENOFOVIR [Interacting]
     Active Substance: EMTRICITABINE\TENOFOVIR DISOPROXIL
     Dosage: 300/200 MG DAILY
     Route: 065
  8. FLUCONAZOLE. [Suspect]
     Active Substance: FLUCONAZOLE
     Indication: PROPHYLAXIS
     Dosage: 400 MG, SINGLE
     Route: 048
  9. RALTEGRAVIR. [Interacting]
     Active Substance: RALTEGRAVIR
     Dosage: 400 MG, 2X/DAY
     Route: 065
  10. PREGABALIN. [Concomitant]
     Active Substance: PREGABALIN
     Indication: PROCEDURAL PAIN
     Dosage: 75 MG, 2X/DAY
     Route: 065
  11. ETRAVIRINE [Interacting]
     Active Substance: ETRAVIRINE
     Dosage: 200 MG, 2X/DAY
     Route: 065
  12. MORPHINE [Concomitant]
     Active Substance: MORPHINE
     Dosage: PATIENT CONTROLLED
     Route: 042
  13. ESOMEPRAZOLE [Concomitant]
     Active Substance: ESOMEPRAZOLE
     Dosage: 20 MG, 1X/DAY
     Route: 065
  14. DARUNAVIR [Interacting]
     Active Substance: DARUNAVIR
     Dosage: 600 MG, 2X/DAY
     Route: 065
  15. RIVAROXABAN [Interacting]
     Active Substance: RIVAROXABAN
     Indication: THROMBOSIS PROPHYLAXIS
     Dosage: 10 MG, 1X/DAY
     Route: 048
  16. VALACICLOVIR [Concomitant]
     Active Substance: VALACYCLOVIR HYDROCHLORIDE
     Dosage: 500 MG, 1X/DAY
     Route: 065
  17. MIRTAZAPINE. [Concomitant]
     Active Substance: MIRTAZAPINE
     Dosage: 45 MG, 1X/DAY, AT NIGHT
     Route: 065

REACTIONS (5)
  - Post procedural haemorrhage [Unknown]
  - Anaemia [Unknown]
  - Hypotension [Unknown]
  - Anticoagulation drug level increased [Recovering/Resolving]
  - Drug interaction [Unknown]
